FAERS Safety Report 15335927 (Version 1)
Quarter: 2018Q3

REPORT INFORMATION
  Report Type: Spontaneous
  Country: ZA (occurrence: ZA)
  Receive Date: 20180830
  Receipt Date: 20180830
  Transmission Date: 20181010
  Serious: Yes (Other)
  Sender: FDA-Public Use
  Company Number: PHHY2018ZA081918

PATIENT
  Sex: Male

DRUGS (1)
  1. IMATINIB [Suspect]
     Active Substance: IMATINIB
     Indication: CHRONIC MYELOID LEUKAEMIA
     Route: 065

REACTIONS (5)
  - Blood urea abnormal [Unknown]
  - Concomitant disease aggravated [Unknown]
  - Blood creatinine increased [Unknown]
  - Renal impairment [Unknown]
  - Glomerular filtration rate decreased [Unknown]
